FAERS Safety Report 9355708 (Version 1)
Quarter: 2013Q2

REPORT INFORMATION
  Report Type: Report from Study
  Country: CA (occurrence: CA)
  Receive Date: 20130619
  Receipt Date: 20130619
  Transmission Date: 20140414
  Serious: Yes (Hospitalization, Other)
  Sender: FDA-Public Use
  Company Number: CA-JNJFOC-20130504410

PATIENT
  Age: 40 Year
  Sex: Female
  Weight: 85 kg

DRUGS (7)
  1. INFLIXIMAB, RECOMBINANT [Suspect]
     Indication: COLITIS ULCERATIVE
     Route: 042
     Dates: start: 20130503
  2. INFLIXIMAB, RECOMBINANT [Suspect]
     Indication: COLITIS ULCERATIVE
     Dosage: WEEK 6
     Route: 042
     Dates: start: 20130415
  3. INFLIXIMAB, RECOMBINANT [Suspect]
     Indication: COLITIS ULCERATIVE
     Dosage: FREQUENCY: 2, 6 WEEKS
     Route: 042
     Dates: start: 20130305
  4. INFLIXIMAB, RECOMBINANT [Suspect]
     Indication: CROHN^S DISEASE
     Route: 042
     Dates: start: 20130503
  5. INFLIXIMAB, RECOMBINANT [Suspect]
     Indication: CROHN^S DISEASE
     Dosage: WEEK 6
     Route: 042
     Dates: start: 20130415
  6. INFLIXIMAB, RECOMBINANT [Suspect]
     Indication: CROHN^S DISEASE
     Dosage: FREQUENCY: 2, 6 WEEKS
     Route: 042
     Dates: start: 20130305
  7. PREDNISONE [Concomitant]
     Route: 048

REACTIONS (4)
  - Crohn^s disease [Unknown]
  - Palpitations [Unknown]
  - Nausea [Unknown]
  - Dehydration [Unknown]
